FAERS Safety Report 25337671 (Version 1)
Quarter: 2025Q2

REPORT INFORMATION
  Report Type: Spontaneous
  Country: US (occurrence: US)
  Receive Date: 20250520
  Receipt Date: 20250520
  Transmission Date: 20250716
  Serious: No
  Sender: SEPTODONT
  Company Number: US-SEPTODONT-2025019319

PATIENT
  Sex: Male

DRUGS (4)
  1. CARBOCAINE [Suspect]
     Active Substance: MEPIVACAINE HYDROCHLORIDE
     Indication: Dental local anaesthesia
     Route: 004
     Dates: start: 20241231, end: 20241231
  2. CARBOCAINE [Suspect]
     Active Substance: MEPIVACAINE HYDROCHLORIDE
     Indication: Dental local anaesthesia
     Route: 004
     Dates: start: 20241231, end: 20241231
  3. Septodont syringes [Concomitant]
     Indication: Dental local anaesthesia
  4. Monoject 27g long needles [Concomitant]
     Indication: Dental local anaesthesia

REACTIONS (1)
  - Drug ineffective [Unknown]

NARRATIVE: CASE EVENT DATE: 20241231
